FAERS Safety Report 4515749-X (Version None)
Quarter: 2004Q4

REPORT INFORMATION
  Report Type: 
  Country: None (occurrence: None)
  Receive Date: 20041201
  Receipt Date: 20041122
  Transmission Date: 20050328
  Serious: Yes (Life-Threatening, Hospitalization, Disabling)
  Sender: FDA-Public Use
  Company Number: US-MERCK-0411USA03527

PATIENT
  Age: 83 Year
  Sex: Female

DRUGS (7)
  1. VIOXX [Suspect]
     Indication: ARTHRITIS
     Route: 048
     Dates: start: 20020701, end: 20040801
  2. FOSAMAX [Concomitant]
     Route: 065
  3. PRIMIDONE [Concomitant]
     Route: 065
  4. ZOLOFT [Concomitant]
     Route: 065
  5. NORVASC [Concomitant]
     Route: 065
  6. THYROID [Concomitant]
     Route: 065
  7. FUROSEMIDE [Concomitant]
     Route: 065

REACTIONS (2)
  - ARTHROPATHY [None]
  - MYOCARDIAL INFARCTION [None]
